FAERS Safety Report 7483348-6 (Version None)
Quarter: 2011Q2

REPORT INFORMATION
  Report Type: 
  Country: None (occurrence: None)
  Receive Date: 20110517
  Receipt Date: 20110314
  Transmission Date: 20111010
  Serious: Yes (Hospitalization, Other)
  Sender: FDA-Public Use
  Company Number: US-BAYER-201040964NA

PATIENT
  Age: 19 Year
  Sex: Female
  Weight: 79 kg

DRUGS (5)
  1. ALLEGRA [Concomitant]
     Indication: MULTIPLE ALLERGIES
     Dosage: UNK
     Dates: start: 20020101, end: 20090101
  2. FLAGYL [Concomitant]
     Dosage: UNK
     Dates: start: 20070121
  3. YAZ [Suspect]
     Indication: MENSTRUATION IRREGULAR
     Dosage: ONE MONTH OF SAMPLE GIVEN JAN-2007, QD
     Route: 048
     Dates: start: 20070214, end: 20070301
  4. IBUPROFEN [Concomitant]
  5. MOTRIN [Concomitant]

REACTIONS (5)
  - DEPRESSION [None]
  - ANXIETY [None]
  - OVARIAN RUPTURE [None]
  - DEEP VEIN THROMBOSIS [None]
  - STRESS [None]
